FAERS Safety Report 18254555 (Version 1)
Quarter: 2020Q3

REPORT INFORMATION
  Report Type: Spontaneous
  Country: AR (occurrence: AR)
  Receive Date: 20200911
  Receipt Date: 20200911
  Transmission Date: 20201103
  Serious: Yes (Other)
  Sender: FDA-Public Use
  Company Number: AR-AMGEN-ARGSP2020146770

PATIENT
  Age: 26 Year
  Sex: Male

DRUGS (1)
  1. ENBREL [Suspect]
     Active Substance: ETANERCEPT
     Indication: RHEUMATOID ARTHRITIS
     Dosage: UNK
     Route: 065
     Dates: start: 2019

REACTIONS (4)
  - Localised infection [Not Recovered/Not Resolved]
  - Pneumonia [Unknown]
  - Pulmonary mass [Unknown]
  - Discomfort [Unknown]

NARRATIVE: CASE EVENT DATE: 202002
